FAERS Safety Report 8062747 (Version 6)
Quarter: 2015Q3

REPORT INFORMATION
  Report Type: Spontaneous
  Country: US (occurrence: US)
  Receive Date: 20110801
  Receipt Date: 20150803
  Transmission Date: 20151125
  Serious: Yes (Hospitalization)
  Sender: FDA-Public Use
  Company Number: US-BAYER-2011-066489

PATIENT
  Age: 26 Year
  Sex: Female
  Weight: 94.34 kg

DRUGS (2)
  1. MIRENA [Suspect]
     Active Substance: LEVONORGESTREL
     Indication: CONTRACEPTION
     Dosage: UNK
  2. MIRENA [Suspect]
     Active Substance: LEVONORGESTREL
     Indication: CONTRACEPTION
     Dosage: 20 MCG/24HR, CONT
     Route: 015
     Dates: start: 20101104, end: 20110802

REACTIONS (8)
  - Uterine perforation [None]
  - Abdominal pain lower [None]
  - Medical device pain [None]
  - Anxiety [None]
  - Device dislocation [None]
  - Stress [None]
  - Procedural pain [None]
  - Medical device discomfort [None]

NARRATIVE: CASE EVENT DATE: 20101104
